FAERS Safety Report 10412089 (Version 1)
Quarter: 2014Q2

REPORT INFORMATION
  Report Type: Spontaneous
  Country: US (occurrence: None)
  Receive Date: 20140604
  Receipt Date: 20140604
  Transmission Date: 20141212
  Serious: Yes (Hospitalization)
  Sender: FDA-Public Use
  Company Number: 163-POMAL-14050184

PATIENT
  Age: 53 Year
  Sex: Female
  Weight: 47.17 kg

DRUGS (2)
  1. POMALYST (POMALIDOMDIE) (4 MILLIGRAM, CAPSULES) [Suspect]
     Indication: PLASMA CELL MYELOMA
     Route: 048
     Dates: start: 201403
  2. VELCADE (BORTEZOMIB) [Concomitant]

REACTIONS (3)
  - Platelet count decreased [None]
  - Haemoglobin decreased [None]
  - Neutropenia [None]
